FAERS Safety Report 9058586 (Version 1)
Quarter: 2013Q1

REPORT INFORMATION
  Report Type: Spontaneous
  Country: US (occurrence: US)
  Receive Date: 20130211
  Receipt Date: 20130211
  Transmission Date: 20140127
  Serious: No
  Sender: FDA-Public Use
  Company Number: US-PFIZER INC-2013051561

PATIENT
  Sex: Female

DRUGS (7)
  1. NORVASC [Suspect]
     Dosage: UNK
  2. CECLOR [Suspect]
     Dosage: UNK
  3. CIPRO [Suspect]
     Dosage: UNK
  4. HYDRALAZINE HYDROCHLORIDE [Suspect]
     Dosage: UNK
  5. ATIVAN [Suspect]
     Dosage: UNK
  6. TOPROL [Suspect]
     Dosage: UNK
  7. MACROBID [Suspect]
     Dosage: UNK

REACTIONS (1)
  - Drug hypersensitivity [Unknown]
